FAERS Safety Report 19436117 (Version 2)
Quarter: 2021Q4

REPORT INFORMATION
  Report Type: Spontaneous
  Country: NL (occurrence: FR)
  Receive Date: 20210618
  Receipt Date: 20211004
  Transmission Date: 20220303
  Serious: Yes (Death, Hospitalization)
  Sender: FDA-Public Use
  Company Number: FR-ELI_LILLY_AND_COMPANY-FR202106000341

PATIENT
  Age: 72 Year
  Sex: Male
  Weight: 58 kg

DRUGS (7)
  1. CARBOPLATIN [Suspect]
     Active Substance: CARBOPLATIN
     Indication: Sarcomatoid mesothelioma
     Dosage: UNK UNK, UNKNOWN
     Route: 065
     Dates: start: 20210519
  2. CARBOPLATIN [Suspect]
     Active Substance: CARBOPLATIN
     Dosage: 390 MG, UNKNOWN
     Route: 065
  3. PEMETREXED [Suspect]
     Active Substance: PEMETREXED
     Indication: Sarcomatoid mesothelioma
     Dosage: 100 MG, UNKNOWN?ALIMTA 100MG
     Route: 042
     Dates: start: 20210519, end: 20210519
  4. PEMETREXED [Suspect]
     Active Substance: PEMETREXED
     Dosage: 825 MG, UNKNOWN
     Route: 042
  5. FOLIC ACID [Concomitant]
     Active Substance: FOLIC ACID
     Indication: Product used for unknown indication
     Route: 065
  6. CORTISONE [Concomitant]
     Active Substance: CORTISONE
     Indication: Product used for unknown indication
     Route: 065
  7. CYANOCOBALAMIN [Concomitant]
     Active Substance: CYANOCOBALAMIN
     Indication: Product used for unknown indication
     Route: 065

REACTIONS (9)
  - Acute kidney injury [Fatal]
  - Gastrointestinal toxicity [Fatal]
  - Fluid intake reduced [Fatal]
  - Nausea [Fatal]
  - Dyspepsia [Fatal]
  - Feeding disorder [Fatal]
  - Diarrhoea [Fatal]
  - Weight decreased [Fatal]
  - Febrile bone marrow aplasia [Fatal]
